FAERS Safety Report 21323730 (Version 1)
Quarter: 2022Q3

REPORT INFORMATION
  Report Type: Spontaneous
  Country: CN (occurrence: CN)
  Receive Date: 20220912
  Receipt Date: 20220912
  Transmission Date: 20221027
  Serious: Yes (Other)
  Sender: FDA-Public Use
  Company Number: CN-PFIZER INC-PV202200060150

PATIENT
  Age: 45 Year
  Sex: Female
  Weight: 69 kg

DRUGS (4)
  1. EPIRUBICIN HYDROCHLORIDE [Suspect]
     Active Substance: EPIRUBICIN HYDROCHLORIDE
     Indication: Breast cancer female
     Dosage: 75 MG/M2, ONCE EVERY 21 DAYS
     Route: 041
     Dates: start: 20220815, end: 20220815
  2. EPIRUBICIN HYDROCHLORIDE [Suspect]
     Active Substance: EPIRUBICIN HYDROCHLORIDE
     Dosage: 75 MG/M2, ONCE EVERY 21 DAYS
     Route: 041
     Dates: start: 20220905, end: 20220905
  3. CYCLOPHOSPHAMIDE [Suspect]
     Active Substance: CYCLOPHOSPHAMIDE
     Indication: Breast cancer female
     Dosage: 600 MG/M2, ONCE EVERY 21 DAYS
     Route: 041
     Dates: start: 20220815, end: 20220815
  4. CYCLOPHOSPHAMIDE [Suspect]
     Active Substance: CYCLOPHOSPHAMIDE
     Dosage: 600 MG/M2, ONCE EVERY 21 DAYS
     Route: 041
     Dates: start: 20220905, end: 20220905

REACTIONS (1)
  - Liver injury [Unknown]

NARRATIVE: CASE EVENT DATE: 20220905
